FAERS Safety Report 4845989-1 (Version None)
Quarter: 2005Q4

REPORT INFORMATION
  Report Type: 
  Country: None (occurrence: None)
  Receive Date: 20051206
  Receipt Date: 20051018
  Transmission Date: 20060501
  Serious: Yes (Hospitalization)
  Sender: FDA-Public Use
  Company Number: JP-AVENTIS-200513069JP

PATIENT
  Age: 68 Year
  Sex: Female
  Weight: 56 kg

DRUGS (9)
  1. ARAVA [Suspect]
     Indication: RHEUMATOID ARTHRITIS
     Route: 048
     Dates: start: 20041216, end: 20051014
  2. NORVASC [Concomitant]
     Indication: HYPERTENSION
     Route: 048
     Dates: start: 20050202
  3. PREDNISOLONE [Concomitant]
     Indication: RHEUMATOID ARTHRITIS
     Route: 048
     Dates: start: 20030906
  4. BONALON [Concomitant]
     Indication: OSTEOPOROSIS
     Dosage: DOSE: 1 TABLET
     Route: 048
     Dates: start: 20050416
  5. GASTROM [Concomitant]
     Indication: GASTRITIS
     Route: 048
     Dates: start: 20050620
  6. OLMETEC                                 /GFR/ [Concomitant]
     Indication: HYPERTENSION
     Route: 048
     Dates: start: 20050730
  7. LOXONIN [Concomitant]
     Indication: RHEUMATOID ARTHRITIS
     Route: 048
     Dates: start: 20050202
  8. LASIX [Concomitant]
     Dates: end: 20050201
  9. DIOVAN [Concomitant]
     Dates: end: 20050201

REACTIONS (3)
  - CARDIAC FAILURE [None]
  - CARDIOMEGALY [None]
  - HYPERTENSION [None]
